FAERS Safety Report 8198675 (Version 4)
Quarter: 2014Q2

REPORT INFORMATION
  Report Type: Report from Study
  Country: BG (occurrence: BG)
  Receive Date: 20111025
  Receipt Date: 20140408
  Transmission Date: 20141212
  Serious: Yes (Other)
  Sender: FDA-Public Use
  Company Number: BG-CELGENEUS-022-C5013-11091755

PATIENT
  Age: 70 Year
  Sex: Male
  Weight: 89 kg

DRUGS (6)
  1. CC-5013 [Suspect]
     Indication: CHRONIC LYMPHOCYTIC LEUKAEMIA
     Dosage: 2.5 MILLIGRAM
     Route: 048
     Dates: start: 20101101
  2. CC-5013 [Suspect]
     Route: 048
     Dates: start: 20110705, end: 20110827
  3. CC-5013 [Suspect]
     Route: 048
     Dates: end: 20110919
  4. ASPIRINE [Concomitant]
     Indication: THROMBOSIS PROPHYLAXIS
     Dosage: 100 MILLIGRAM
     Route: 048
     Dates: start: 2009
  5. LOSARTAN [Concomitant]
     Indication: HYPERTENSION
     Dosage: 150 MILLIGRAM
     Route: 048
     Dates: start: 2009
  6. INSULIN [Concomitant]
     Indication: DIABETES MELLITUS
     Dosage: 1218
     Route: 058
     Dates: start: 20101228

REACTIONS (1)
  - Blood potassium increased [Recovered/Resolved]
